FAERS Safety Report 16059226 (Version 4)
Quarter: 2019Q2

REPORT INFORMATION
  Report Type: Report from Study
  Country: DE (occurrence: DE)
  Receive Date: 20190311
  Receipt Date: 20190430
  Transmission Date: 20190711
  Serious: Yes (Life-Threatening, Hospitalization)
  Sender: FDA-Public Use
  Company Number: DE-MYLANLABS-2019M1021085

PATIENT
  Age: 63 Year
  Sex: Male
  Weight: 87 kg

DRUGS (15)
  1. AMIODARONE [Suspect]
     Active Substance: AMIODARONE
     Indication: CARDIOVASCULAR EVENT PROPHYLAXIS
  2. METOPROLOL W/MORPHINE [Concomitant]
     Indication: HYPERTENSION
  3. ATORVASTATIN [Concomitant]
     Active Substance: ATORVASTATIN
     Indication: DYSLIPIDAEMIA
     Dosage: 80 MILLIGRAM
     Route: 048
     Dates: start: 20160105
  4. GLIMEPIRIDE. [Concomitant]
     Active Substance: GLIMEPIRIDE
     Indication: DIABETES MELLITUS
     Dosage: 1 MILLIGRAM, QD
     Route: 048
     Dates: start: 2008
  5. CANAKINUMAB. [Suspect]
     Active Substance: CANAKINUMAB
     Indication: CARDIOVASCULAR EVENT PROPHYLAXIS
     Dosage: 150 MILLIGRAM, Q3MONTHS(150 MG, Q3MO)
     Route: 058
     Dates: start: 20171017, end: 20180413
  6. CANAKINUMAB. [Suspect]
     Active Substance: CANAKINUMAB
     Dosage: CODE NOT BROKEN
     Route: 058
     Dates: start: 20170717
  7. CORDAREX [Suspect]
     Active Substance: AMIODARONE
     Indication: VENTRICULAR TACHYCARDIA
     Dosage: UNK UNK, QD
     Route: 065
     Dates: start: 20180709, end: 20180709
  8. TORASEMID [Concomitant]
     Active Substance: TORSEMIDE
     Indication: CARDIAC FAILURE
  9. AMIODARONE [Suspect]
     Active Substance: AMIODARONE
     Indication: VENTRICULAR TACHYCARDIA
     Dosage: UNK
     Route: 065
     Dates: start: 20180709, end: 20180709
  10. RAMILICH [Concomitant]
     Active Substance: RAMIPRIL
     Indication: HYPERTENSION
     Dosage: 5 MILLIGRAM
     Route: 048
     Dates: start: 2003
  11. PRADAXA [Suspect]
     Active Substance: DABIGATRAN ETEXILATE MESYLATE
     Indication: ATRIAL FIBRILLATION
     Dosage: 75 MILLIGRAM, BID (150 MILLIGRAM, QD)
     Route: 048
     Dates: start: 20160105
  12. PRADAXA [Suspect]
     Active Substance: DABIGATRAN ETEXILATE MESYLATE
     Indication: HYPERTENSION
     Dosage: 150 MILLIGRAM
     Route: 048
  13. EPLERENONE. [Concomitant]
     Active Substance: EPLERENONE
     Indication: CARDIAC FAILURE
     Dosage: 50 MILLIGRAM
     Route: 048
     Dates: start: 20160105
  14. METOPROLOL W/MORPHINE [Concomitant]
     Indication: CORONARY ARTERY DISEASE
     Dosage: 190 MILLIGRAM, QD(95 MG, BID)
     Route: 048
     Dates: start: 20160105
  15. TORASEMID [Concomitant]
     Active Substance: TORSEMIDE
     Indication: HYPERTENSION
     Dosage: 5 MILLIGRAM, QD
     Route: 048
     Dates: start: 2007

REACTIONS (2)
  - Anxiety disorder [Unknown]
  - Ventricular tachycardia [Recovered/Resolved]

NARRATIVE: CASE EVENT DATE: 20171205
